FAERS Safety Report 25529484 (Version 1)
Quarter: 2025Q3

REPORT INFORMATION
  Report Type: Spontaneous
  Country: US (occurrence: US)
  Receive Date: 20250708
  Receipt Date: 20250708
  Transmission Date: 20251021
  Serious: No
  Sender: LEXICON PHARMACEUTICALS
  Company Number: US-LEX-000771

PATIENT
  Age: 73 Year
  Sex: Female

DRUGS (4)
  1. INPEFA [Suspect]
     Active Substance: SOTAGLIFLOZIN
     Indication: Product used for unknown indication
     Route: 048
     Dates: start: 20241004
  2. SPIRONOLACTONE [Concomitant]
     Active Substance: SPIRONOLACTONE
  3. ELIQUIS [Concomitant]
     Active Substance: APIXABAN
  4. METOPROLOL SUCCINATE [Concomitant]
     Active Substance: METOPROLOL SUCCINATE

REACTIONS (2)
  - Memory impairment [Unknown]
  - Inappropriate schedule of product administration [Unknown]
